FAERS Safety Report 8241591-2 (Version None)
Quarter: 2012Q1

REPORT INFORMATION
  Report Type: 
  Country: None (occurrence: None)
  Receive Date: 20120328
  Receipt Date: 20120322
  Transmission Date: 20120608
  Serious: Yes (Hospitalization)
  Sender: FDA-Public Use
  Company Number: HK-PFIZER INC-2012075901

PATIENT
  Age: 59 Year
  Sex: Male

DRUGS (4)
  1. RIFAMPICIN [Suspect]
     Indication: PULMONARY TUBERCULOSIS
     Dosage: 600 MG, UNK
  2. PYRAZINAMIDE [Suspect]
     Indication: PULMONARY TUBERCULOSIS
     Dosage: 2 G, 3X/WEEK
  3. ISONIAZID [Suspect]
     Indication: PULMONARY TUBERCULOSIS
     Dosage: 600 MG, UNK
  4. ETHAMBUTOL [Suspect]
     Indication: PULMONARY TUBERCULOSIS
     Dosage: 1.5 G, UNK

REACTIONS (1)
  - PORPHYRIA NON-ACUTE [None]
